FAERS Safety Report 5326808-6 (Version None)
Quarter: 2007Q2

REPORT INFORMATION
  Report Type: 
  Country: None (occurrence: None)
  Receive Date: 20070516
  Receipt Date: 20070504
  Transmission Date: 20071010
  Serious: Yes (Hospitalization)
  Sender: FDA-Public Use
  Company Number: AU-BRISTOL-MYERS SQUIBB COMPANY-13777974

PATIENT
  Age: 66 Year
  Sex: Female

DRUGS (8)
  1. METFORMIN HCL [Suspect]
     Dates: end: 20060304
  2. PERINDOPRIL [Suspect]
  3. PARACETAMOL [Concomitant]
  4. LEVOTHYROXINE SODIUM [Concomitant]
  5. ASPIRIN [Concomitant]
  6. ATORVASTATIN CALCIUM [Concomitant]
  7. PANTOPRAZOLE SODIUM [Concomitant]
  8. ROSIGLITAZONE [Concomitant]

REACTIONS (2)
  - LACTIC ACIDOSIS [None]
  - RENAL FAILURE ACUTE [None]
